FAERS Safety Report 9167518 (Version 1)
Quarter: 2013Q1

REPORT INFORMATION
  Report Type: Spontaneous
  Country: GB (occurrence: GB)
  Receive Date: 20130318
  Receipt Date: 20130318
  Transmission Date: 20140127
  Serious: Yes (Disabling, Other)
  Sender: FDA-Public Use
  Company Number: GB-ACCORD-016868

PATIENT
  Age: 63 Year
  Sex: Male

DRUGS (3)
  1. SIMVASTATIN [Suspect]
     Indication: PROPHYLAXIS
     Dosage: AT NIGHT
     Route: 048
     Dates: start: 20130222, end: 20130227
  2. ASPIRIN [Concomitant]
  3. PARACETAMOL [Concomitant]

REACTIONS (6)
  - Asthenia [Recovering/Resolving]
  - Lethargy [Recovering/Resolving]
  - Photophobia [Recovering/Resolving]
  - Procedural pain [Unknown]
  - Skin warm [Unknown]
  - Rhabdomyolysis [Unknown]
